FAERS Safety Report 8847141 (Version 1)
Quarter: 2012Q4

REPORT INFORMATION
  Report Type: Spontaneous
  Country: US (occurrence: None)
  Receive Date: 20121017
  Receipt Date: 20121017
  Transmission Date: 20130627
  Serious: Yes (Hospitalization)
  Sender: FDA-Public Use
  Company Number: None

PATIENT
  Sex: Male
  Weight: 82.5 kg

DRUGS (12)
  1. PACLITAXEL [Suspect]
     Dates: end: 20120828
  2. BENADRYL [Concomitant]
  3. CULTURELLE [Concomitant]
  4. DEXAMETHASONE [Concomitant]
  5. LOMOTIL [Concomitant]
  6. MULTIVITAMIN [Concomitant]
  7. NORCO [Concomitant]
  8. ONDANSETRON HCL [Concomitant]
  9. PRILOSEC OTC [Concomitant]
  10. PROCHLORPERAZINE MALEATE [Concomitant]
  11. PROZAC [Concomitant]
  12. TYLENOL [Concomitant]

REACTIONS (1)
  - Haemoglobin decreased [None]
